FAERS Safety Report 9242453 (Version 1)
Quarter: 2013Q2

REPORT INFORMATION
  Report Type: Spontaneous
  Country: FR (occurrence: FR)
  Receive Date: 20130419
  Receipt Date: 20130419
  Transmission Date: 20140414
  Serious: Yes (Other)
  Sender: FDA-Public Use
  Company Number: FR-TEVA-397288ISR

PATIENT
  Age: 86 Year
  Sex: Female

DRUGS (6)
  1. FLUOROURACIL [Suspect]
     Indication: COLON CANCER METASTATIC
     Dosage: 4180 MILLIGRAM DAILY; FIRST-LINE CHEMOTHERAPY:3000MG/M2 (4180MG) OVER 44 HOURS
     Route: 041
  2. FLUOROURACIL [Suspect]
     Indication: COLON CANCER METASTATIC
     Dosage: SECOND-LINE TREATMENT
     Route: 041
  3. OXALIPLATIN [Suspect]
     Indication: COLON CANCER METASTATIC
     Dosage: FIRST-LINE CHEMOTHERAPY
     Route: 041
  4. BEVACIZUMAB [Suspect]
     Indication: COLON CANCER METASTATIC
     Dosage: 5 MG/KG IN 100ML OF ISOTONIC SOLUTION OVER 30 MINUTES (TOTAL DOSE/CYCLE: 220MG)
     Route: 041
  5. FOLINIC ACID [Concomitant]
     Indication: COLON CANCER METASTATIC
     Dosage: 278 MILLIGRAM DAILY; 200 MG/M2 (278MG) OVER 120 MINUTES
     Route: 041
  6. FOLINIC ACID [Concomitant]
     Indication: COLON CANCER METASTATIC
     Route: 041

REACTIONS (5)
  - Extravasation [Recovered/Resolved]
  - Neck pain [Recovered/Resolved]
  - Odynophagia [Recovered/Resolved]
  - Local swelling [Recovered/Resolved]
  - Diarrhoea [Unknown]
